FAERS Safety Report 6269252-X (Version None)
Quarter: 2009Q3

REPORT INFORMATION
  Report Type: 
  Country: None (occurrence: None)
  Receive Date: 20090713
  Receipt Date: 20090630
  Transmission Date: 20100115
  Serious: No
  Sender: FDA-Public Use
  Company Number: 8044754

PATIENT
  Age: 45 Year
  Sex: Male

DRUGS (1)
  1. KEPPRA [Suspect]
     Indication: EPILEPSY
     Dates: start: 20070101

REACTIONS (2)
  - COMPLEX PARTIAL SEIZURES [None]
  - PETIT MAL EPILEPSY [None]
